FAERS Safety Report 10379530 (Version 1)
Quarter: 2014Q3

REPORT INFORMATION
  Report Type: Spontaneous
  Country: IN (occurrence: None)
  Receive Date: 20140808
  Receipt Date: 20140808
  Transmission Date: 20150326
  Serious: Yes (Life-Threatening, Hospitalization)
  Sender: FDA-Public Use
  Company Number: 2014/057

PATIENT
  Age: 19 Year
  Sex: Male

DRUGS (4)
  1. OLANZAPINE (NO PREF. NAME) [Suspect]
     Active Substance: OLANZAPINE
     Indication: DELUSION
  2. VALPROIC ACID (NO PREF. NAME) [Suspect]
     Active Substance: VALPROIC ACID
     Indication: DELUSION
  3. VALPROIC ACID (NO PREF. NAME) [Suspect]
     Active Substance: VALPROIC ACID
     Indication: HALLUCINATION
  4. OLANZAPINE (NO PREF. NAME) [Suspect]
     Active Substance: OLANZAPINE
     Indication: HALLUCINATION

REACTIONS (2)
  - Serotonin syndrome [None]
  - Neuroleptic malignant syndrome [None]
